FAERS Safety Report 4539953-X (Version None)
Quarter: 2004Q4

REPORT INFORMATION
  Report Type: 
  Country: None (occurrence: None)
  Receive Date: 20041223
  Receipt Date: 20041213
  Transmission Date: 20050328
  Serious: Yes (Hospitalization)
  Sender: FDA-Public Use
  Company Number: 2004094854

PATIENT
  Age: 58 Year
  Sex: Female
  Weight: 75 kg

DRUGS (15)
  1. FELDENE [Suspect]
     Indication: ILL-DEFINED DISORDER
     Dosage: (20 MG), ORAL
     Route: 048
     Dates: start: 20040901, end: 20040904
  2. INOSINE PRANOBEX (INOSINE PRANOBEX) [Suspect]
     Indication: ILL-DEFINED DISORDER
     Dosage: ORAL
     Route: 048
     Dates: start: 20040901, end: 20040905
  3. TRAMADOL HCL [Suspect]
     Indication: ILL-DEFINED DISORDER
     Dosage: (50 MG), ORAL
     Route: 048
     Dates: start: 20040828, end: 20040905
  4. LEVOTHYROXINE SODIUM [Concomitant]
  5. METFORMIN HCL [Concomitant]
  6. PRAVASTATIN [Concomitant]
  7. HYDROQUINIDINE (HYDROQUINIDINE) [Concomitant]
  8. AMLODIPINE [Concomitant]
  9. WARFARIN SODIUM [Concomitant]
  10. TRIMETAZIDINE HYDROCHLORIDE (TRIMETAZIDINE HYDROCHLORIDE) [Concomitant]
  11. CHONDROITIN SULFATE SODIUM (CHONDROTIN SULFATE SODIUM) [Concomitant]
  12. SERTRALINE HCL [Concomitant]
  13. ROFECOXIB [Concomitant]
  14. ALLOPURINOL [Concomitant]
  15. CALCIPOTRIOL (CALCIPOTRIOL) [Concomitant]

REACTIONS (1)
  - ACUTE GENERALISED EXANTHEMATOUS PUSTULOSIS [None]
